FAERS Safety Report 6217234-6 (Version None)
Quarter: 2009Q2

REPORT INFORMATION
  Report Type: 
  Country: None (occurrence: None)
  Receive Date: 20090608
  Receipt Date: 20090526
  Transmission Date: 20091009
  Serious: Yes (Other)
  Sender: FDA-Public Use
  Company Number: FR-PFIZER INC-2009218816

PATIENT
  Age: 50 Year

DRUGS (1)
  1. CHAMPIX [Suspect]

REACTIONS (3)
  - ABNORMAL BEHAVIOUR [None]
  - MORBID THOUGHTS [None]
  - SUICIDAL IDEATION [None]
